FAERS Safety Report 4413246-3 (Version None)
Quarter: 2004Q3

REPORT INFORMATION
  Report Type: 
  Country: None (occurrence: None)
  Receive Date: 20040728
  Receipt Date: 20040720
  Transmission Date: 20050211
  Serious: Yes (Death)
  Sender: FDA-Public Use
  Company Number: USA-2004-0016131

PATIENT
  Age: 35 Year
  Sex: Male

DRUGS (2)
  1. MORPHINE SULFATE [Suspect]
     Indication: PAIN
     Dates: start: 20020501
  2. METHADONE HCL [Suspect]

REACTIONS (2)
  - ASTHMA [None]
  - MULTIPLE DRUG OVERDOSE ACCIDENTAL [None]
